FAERS Safety Report 5363252-X (Version None)
Quarter: 2007Q2

REPORT INFORMATION
  Report Type: 
  Country: None (occurrence: None)
  Receive Date: 20070620
  Receipt Date: 20070612
  Transmission Date: 20071010
  Serious: Yes (Hospitalization)
  Sender: FDA-Public Use
  Company Number: FR-BAXTER-2007BH000721

PATIENT
  Age: 61 Year
  Sex: Female
  Weight: 70 kg

DRUGS (21)
  1. EXTRANEAL [Suspect]
     Indication: DRUG USE FOR UNKNOWN INDICATION
     Route: 033
     Dates: start: 20070114, end: 20070121
  2. EXTRANEAL [Suspect]
     Route: 033
     Dates: start: 20070122, end: 20070123
  3. PD SOLUTION FROM FRESENIUS [Concomitant]
     Dates: start: 20060501
  4. ATORVASTATIN CALCIUM [Concomitant]
  5. FUROSEMIDE [Concomitant]
  6. AMLODIPINE [Concomitant]
  7. EUPRESSYL [Concomitant]
  8. FERROUS SULFATE [Concomitant]
  9. PARACETAMOL [Concomitant]
  10. ALUMINUM HYDROXIDE GEL [Concomitant]
  11. MAGNESIUM HYDROXIDE TAB [Concomitant]
  12. FLUINDIONE [Concomitant]
  13. ACEBUTOLOL [Concomitant]
  14. ALFACALCIDOL [Concomitant]
  15. CALCIUM CARBONATE [Concomitant]
  16. ASPIRIN [Concomitant]
  17. IRBESARTAN [Concomitant]
  18. DOMPERIDONE [Concomitant]
  19. CALCIPARINE [Concomitant]
  20. AMOXICILLIN [Concomitant]
     Indication: LUNG DISORDER
  21. OFLOXACIN [Concomitant]
     Indication: LUNG DISORDER

REACTIONS (4)
  - DRUG INEFFECTIVE [None]
  - LUNG DISORDER [None]
  - PERITONITIS [None]
  - PULMONARY OEDEMA [None]
